FAERS Safety Report 12431920 (Version 1)
Quarter: 2016Q2

REPORT INFORMATION
  Report Type: Report from Study
  Country: AR (occurrence: AR)
  Receive Date: 20160603
  Receipt Date: 20160603
  Transmission Date: 20160815
  Serious: Yes (Other)
  Sender: FDA-Public Use
  Company Number: PHHY2016AR076135

PATIENT
  Sex: Female

DRUGS (1)
  1. EXFORGE [Suspect]
     Active Substance: AMLODIPINE BESYLATE\VALSARTAN
     Indication: HYPERTENSION
     Dosage: 1 DF, QD (FROM 3 MONTHS AGO APPROXIMATELY TO AFTER A WEEK OF THE START OF TREATMENT)
     Route: 065

REACTIONS (3)
  - Feeling hot [Recovering/Resolving]
  - Malaise [Recovering/Resolving]
  - Asphyxia [Recovering/Resolving]
